FAERS Safety Report 18464209 (Version 2)
Quarter: 2021Q1

REPORT INFORMATION
  Report Type: Spontaneous
  Country: JP (occurrence: JP)
  Receive Date: 20201104
  Receipt Date: 20210125
  Transmission Date: 20210419
  Serious: Yes (Death, Hospitalization, Other)
  Sender: FDA-Public Use
  Company Number: JP-JNJFOC-20201104307

PATIENT
  Age: 69 Year
  Sex: Male

DRUGS (1)
  1. DARZALEX [Suspect]
     Active Substance: DARATUMUMAB
     Indication: PLASMA CELL MYELOMA
     Dosage: 17COURSE
     Route: 041

REACTIONS (6)
  - Pancytopenia [Recovered/Resolved]
  - Myelodysplastic syndrome [Unknown]
  - Influenza [Recovered/Resolved]
  - Septic shock [Recovered/Resolved]
  - Multiple organ dysfunction syndrome [Fatal]
  - Pneumonia bacterial [Recovered/Resolved]
